FAERS Safety Report 20883758 (Version 1)
Quarter: 2022Q2

REPORT INFORMATION
  Report Type: Spontaneous
  Country: US (occurrence: None)
  Receive Date: 20220526
  Receipt Date: 20220526
  Transmission Date: 20220720
  Serious: No
  Sender: FDA-Public Use
  Company Number: None

PATIENT
  Age: 64 Year
  Sex: Female

DRUGS (1)
  1. TREMFYA [Suspect]
     Active Substance: GUSELKUMAB
     Indication: Psoriasis
     Dosage: INJECT 100 (1 PEN) SUBCUTANEOUS   AT WEEK 0 AND WEEK 4 AS DIRECTED
     Route: 058
     Dates: start: 202106

REACTIONS (1)
  - Oxygen saturation decreased [None]
